FAERS Safety Report 6419959-6 (Version None)
Quarter: 2009Q4

REPORT INFORMATION
  Report Type: 
  Country: None (occurrence: None)
  Receive Date: 20091029
  Receipt Date: 20091026
  Transmission Date: 20100525
  Serious: Yes (Death, Hospitalization, Other)
  Sender: FDA-Public Use
  Company Number: DE-ROXANE LABORATORIES, INC.-2009-RO-01093RO

PATIENT
  Age: 67 Year

DRUGS (3)
  1. AZATHIOPRINE [Suspect]
     Indication: IMMUNOSUPPRESSION
     Dosage: 50 MG
  2. PREDNISOLONE [Suspect]
     Indication: IMMUNOSUPPRESSION
     Dosage: 5 MG
  3. TEMOZOLOMIDE [Suspect]
     Indication: CHEMOTHERAPY

REACTIONS (10)
  - DYSPNOEA [None]
  - LYMPHOEDEMA [None]
  - MALIGNANT MELANOMA [None]
  - METASTASES TO CENTRAL NERVOUS SYSTEM [None]
  - METASTASES TO LIVER [None]
  - METASTASES TO LUNG [None]
  - METASTASES TO LYMPH NODES [None]
  - METASTASES TO SPLEEN [None]
  - PLEURAL EFFUSION [None]
  - SKIN CANCER [None]
